FAERS Safety Report 25920183 (Version 1)
Quarter: 2025Q4

REPORT INFORMATION
  Report Type: Report from Study
  Country: BR (occurrence: BR)
  Receive Date: 20251014
  Receipt Date: 20251014
  Transmission Date: 20260117
  Serious: Yes (Other)
  Sender: SANOFI AVENTIS
  Company Number: BR-SANOFI-02598829

PATIENT
  Age: 36 Year
  Sex: Male
  Weight: 85 kg

DRUGS (5)
  1. DUPILUMAB [Suspect]
     Active Substance: DUPILUMAB
     Indication: Dermatitis atopic
     Dosage: 300 MG, QOW
     Route: 058
     Dates: start: 202406, end: 202412
  2. METICORTEN [Concomitant]
     Active Substance: PREDNISONE
     Indication: Dermatitis
     Dosage: 20 MG, QD
  3. DECADRON [Concomitant]
     Active Substance: DEXAMETHASONE
     Indication: Dermatitis
     Dosage: 4 MG, QD
  4. LEVOTHYROXINE [Concomitant]
     Active Substance: LEVOTHYROXINE
     Indication: Dermatitis
     Dosage: 150 UG, QD
  5. LEVOTHYROXINE [Concomitant]
     Active Substance: LEVOTHYROXINE
     Indication: Thyroid cancer

REACTIONS (4)
  - Thyroid cancer [Recovering/Resolving]
  - Therapeutic response unexpected [Unknown]
  - Dermatitis [Not Recovered/Not Resolved]
  - Anxiety disorder [Not Recovered/Not Resolved]

NARRATIVE: CASE EVENT DATE: 20250101
